FAERS Safety Report 17486235 (Version 1)
Quarter: 2020Q1

REPORT INFORMATION
  Report Type: Spontaneous
  Country: GB (occurrence: GB)
  Receive Date: 20200303
  Receipt Date: 20200303
  Transmission Date: 20200409
  Serious: Yes (Hospitalization)
  Sender: FDA-Public Use
  Company Number: GB-ACCORD-174479

PATIENT
  Age: 68 Year
  Sex: Male
  Weight: 119 kg

DRUGS (5)
  1. TENSIPINE MR [Concomitant]
     Active Substance: NIFEDIPINE
     Dates: start: 20190726, end: 20200207
  2. NIFEDIPRESS MR [Concomitant]
     Dosage: WHILE TENSIPINE OUT OF STOCK
     Dates: start: 20200110, end: 20200207
  3. METRONIDAZOLE. [Concomitant]
     Active Substance: METRONIDAZOLE
     Dosage: APPLY ON ALTERNATE DAYS
     Dates: start: 20180425
  4. AMLODIPINE [Suspect]
     Active Substance: AMLODIPINE BESYLATE
     Indication: PRODUCT USED FOR UNKNOWN INDICATION
     Dates: start: 20200207
  5. BISOPROLOL [Concomitant]
     Active Substance: BISOPROLOL
     Dates: start: 20180425

REACTIONS (4)
  - Non-cardiac chest pain [Recovered/Resolved]
  - Back pain [Unknown]
  - Headache [Recovered/Resolved]
  - Dyspnoea [Recovered/Resolved]

NARRATIVE: CASE EVENT DATE: 20200217
